FAERS Safety Report 12631824 (Version 3)
Quarter: 2016Q3

REPORT INFORMATION
  Report Type: Spontaneous
  Country: US (occurrence: US)
  Receive Date: 20160808
  Receipt Date: 20160822
  Transmission Date: 20161109
  Serious: No
  Sender: FDA-Public Use
  Company Number: US-BEH-2016061172

PATIENT
  Age: 3 Year
  Sex: Female
  Weight: 12.7 kg

DRUGS (3)
  1. OINTMENT [Concomitant]
     Active Substance: UNSPECIFIED INGREDIENT
  2. EPIPEN [Concomitant]
     Active Substance: EPINEPHRINE
  3. HIZENTRA [Suspect]
     Active Substance: HUMAN IMMUNOGLOBULIN G
     Indication: HYPOGAMMAGLOBULINAEMIA
     Dosage: 2 G, QOW
     Route: 058
     Dates: start: 20130509

REACTIONS (1)
  - Ear infection [Unknown]

NARRATIVE: CASE EVENT DATE: 20151231
